FAERS Safety Report 23627735 (Version 1)
Quarter: 2024Q1

REPORT INFORMATION
  Report Type: Spontaneous
  Country: NL (occurrence: NL)
  Receive Date: 20240313
  Receipt Date: 20240313
  Transmission Date: 20240410
  Serious: Yes (Hospitalization, Other)
  Sender: FDA-Public Use
  Company Number: None

PATIENT
  Age: 64 Year
  Sex: Male
  Weight: 104 kg

DRUGS (2)
  1. CLOPIDOGREL BISULFATE [Suspect]
     Active Substance: CLOPIDOGREL BISULFATE
     Indication: Transient ischaemic attack
     Dosage: 75 MG, QD
     Dates: start: 20240103, end: 20240201
  2. EZETIMIBE [Suspect]
     Active Substance: EZETIMIBE
     Indication: Transient ischaemic attack
     Dosage: 1X PER DAY 10 MG
     Dates: start: 20240103

REACTIONS (2)
  - Hypertension [Unknown]
  - Intestinal haemorrhage [Recovered/Resolved]

NARRATIVE: CASE EVENT DATE: 20240129
